FAERS Safety Report 6316586-6 (Version None)
Quarter: 2009Q3

REPORT INFORMATION
  Report Type: 
  Country: None (occurrence: None)
  Receive Date: 20090820
  Receipt Date: 20090817
  Transmission Date: 20100115
  Serious: Yes (Other)
  Sender: FDA-Public Use
  Company Number: PHHY2009FI34801

PATIENT
  Sex: Male

DRUGS (5)
  1. LESCOL [Suspect]
     Indication: HYPERCHOLESTEROLAEMIA
     Dosage: 1 TABLET PER DAY
     Route: 048
     Dates: start: 20090601, end: 20090701
  2. METFOREM [Concomitant]
     Dosage: 500 MG, BID
     Route: 048
  3. MAREVAN FORTE [Concomitant]
     Dosage: 5 MG, UNK
  4. EMCONCOR [Concomitant]
     Dosage: 5 MG, QD
  5. NITROSID [Concomitant]
     Dosage: 20 MG, TID

REACTIONS (11)
  - ABDOMINAL DISTENSION [None]
  - ALANINE AMINOTRANSFERASE INCREASED [None]
  - ASTHENIA [None]
  - BLOOD ALKALINE PHOSPHATASE INCREASED [None]
  - C-REACTIVE PROTEIN INCREASED [None]
  - DECREASED APPETITE [None]
  - FATIGUE [None]
  - GAMMA-GLUTAMYLTRANSFERASE INCREASED [None]
  - INTERNATIONAL NORMALISED RATIO FLUCTUATION [None]
  - PAIN IN EXTREMITY [None]
  - WHITE BLOOD CELL COUNT INCREASED [None]
